FAERS Safety Report 4818888-9 (Version None)
Quarter: 2005Q4

REPORT INFORMATION
  Report Type: 
  Country: None (occurrence: None)
  Receive Date: 20051031
  Receipt Date: 20051020
  Transmission Date: 20060501
  Serious: Yes (Hospitalization, Other)
  Sender: FDA-Public Use
  Company Number: HQWYE128320OCT05

PATIENT
  Age: 30 Year
  Sex: Male

DRUGS (1)
  1. DUOLUTON (NORGESTREL/ETINYL ESTRADIOL, TABLET) [Suspect]
     Indication: MENSTRUATION IRREGULAR
     Route: 048
     Dates: start: 20030101, end: 20051001

REACTIONS (5)
  - ALANINE AMINOTRANSFERASE INCREASED [None]
  - ASPARTATE AMINOTRANSFERASE INCREASED [None]
  - JAUNDICE [None]
  - LIVER DISORDER [None]
  - PRURITUS [None]
